FAERS Safety Report 4571940-8 (Version None)
Quarter: 2005Q1

REPORT INFORMATION
  Report Type: 
  Country: None (occurrence: None)
  Receive Date: 20050202
  Receipt Date: 20050120
  Transmission Date: 20050727
  Serious: Yes (Death, Hospitalization, Other)
  Sender: FDA-Public Use
  Company Number: 2004119093

PATIENT
  Age: 66 Year
  Sex: Male

DRUGS (6)
  1. CELEBREX [Suspect]
     Indication: GOUT
     Dosage: ORAL
     Route: 048
     Dates: start: 19990101, end: 19990101
  2. WARFARIN SODIUM [Concomitant]
  3. DIURETICS (DIURETICS) [Concomitant]
  4. ANTIHYPERTENSIVES (ANTIHYPERTENSIVES) [Concomitant]
  5. ALL OTHER THERAPEUTIC PRODUCTS (ALL OTHER THERAPEUTIC PRODUCTS) [Concomitant]
  6. INSULIN [Concomitant]

REACTIONS (3)
  - CEREBROVASCULAR ACCIDENT [None]
  - DISEASE RECURRENCE [None]
  - OESOPHAGEAL CARCINOMA [None]
